FAERS Safety Report 5576450-7 (Version None)
Quarter: 2007Q4

REPORT INFORMATION
  Report Type: 
  Country: None (occurrence: None)
  Receive Date: 20071228
  Receipt Date: 20071226
  Transmission Date: 20080405
  Serious: Yes (Death)
  Sender: FDA-Public Use
  Company Number: JP-ASTRAZENECA-2007AP08155

PATIENT
  Age: 37 Year
  Sex: Female

DRUGS (2)
  1. NAROPIN [Suspect]
     Indication: EPIDURAL ANAESTHESIA
     Route: 008
  2. DIPRIVAN [Suspect]
     Indication: GENERAL ANAESTHESIA
     Dosage: DOSE UNKNOWN
     Route: 042

REACTIONS (1)
  - HYPOXIA [None]
